FAERS Safety Report 24290372 (Version 1)
Quarter: 2024Q3

REPORT INFORMATION
  Report Type: Spontaneous
  Country: US (occurrence: None)
  Receive Date: 20240906
  Receipt Date: 20240906
  Transmission Date: 20241016
  Serious: Yes (Hospitalization)
  Sender: Public
  Company Number: None

PATIENT
  Sex: Female
  Weight: 96.2 kg

DRUGS (2)
  1. CISPLATIN [Suspect]
     Active Substance: CISPLATIN
  2. GEMCITABINE HYDROCHLORIDE [Concomitant]
     Active Substance: GEMCITABINE HYDROCHLORIDE

REACTIONS (9)
  - Pyrexia [None]
  - Malaise [None]
  - Nasal congestion [None]
  - Cough [None]
  - Atelectasis [None]
  - Aspiration [None]
  - Pneumonia [None]
  - Tachycardia [None]
  - Hypotension [None]

NARRATIVE: CASE EVENT DATE: 20230829
